FAERS Safety Report 4616175-5 (Version None)
Quarter: 2005Q1

REPORT INFORMATION
  Report Type: 
  Country: None (occurrence: None)
  Receive Date: 20050321
  Receipt Date: 20030710
  Transmission Date: 20050727
  Serious: No
  Sender: FDA-Public Use
  Company Number: 5958

PATIENT
  Sex: Male

DRUGS (4)
  1. AMIODARONE [Suspect]
     Indication: SUPRAVENTRICULAR TACHYCARDIA
     Dosage: 200 MG PO
     Route: 048
     Dates: start: 20020208, end: 20030407
  2. IPRATROPIUM + SALBUTAMOL [Concomitant]
  3. BUMETANIDE [Concomitant]
  4. LISINOPRIL [Concomitant]

REACTIONS (7)
  - ASTHENIA [None]
  - BLOOD CREATININE INCREASED [None]
  - BLOOD UREA INCREASED [None]
  - DYSKINESIA [None]
  - DYSPNOEA [None]
  - SOMNOLENCE [None]
  - TREMOR [None]
